FAERS Safety Report 18316468 (Version 2)
Quarter: 2023Q4

REPORT INFORMATION
  Report Type: Other
  Country: US (occurrence: None)
  Receive Date: 20200927
  Receipt Date: 20231010
  Transmission Date: 20240110
  Serious: Yes (Other)
  Sender: FDA-Public Use
  Company Number: US-ROCHE-2681075

PATIENT
  Age: 59 Year
  Sex: Female
  Weight: 77.18 kg

DRUGS (18)
  1. OCREVUS [Suspect]
     Active Substance: OCRELIZUMAB
     Indication: Multiple sclerosis relapse
     Dosage: ONGOING: YES?DATE OF TREATMENT: 15/FEB/2022, 11/AUG/2023
     Route: 042
     Dates: start: 20180827
  2. OCREVUS [Suspect]
     Active Substance: OCRELIZUMAB
     Dosage: 1 VIAL ON DAY 1 AND DAY 15
     Route: 042
  3. METOPROLOL SUCCINATE [Concomitant]
     Active Substance: METOPROLOL SUCCINATE
     Indication: Hypertension
     Dosage: YES
     Route: 048
     Dates: start: 2006
  4. DALFAMPRIDINE [Concomitant]
     Active Substance: DALFAMPRIDINE
     Dosage: YES?DALFAMPRIDINE ER
     Route: 048
     Dates: start: 202007
  5. METHENAMINE HIPPURATE [Concomitant]
     Active Substance: METHENAMINE HIPPURATE
     Indication: Cystitis
     Dosage: NO
     Route: 048
     Dates: start: 201912, end: 202005
  6. METHENAMINE HIPPURATE [Concomitant]
     Active Substance: METHENAMINE HIPPURATE
     Dosage: YES
     Route: 048
     Dates: start: 20200822
  7. CITALOPRAM [Concomitant]
     Active Substance: CITALOPRAM HYDROBROMIDE
     Indication: Depression
     Dosage: YES
     Route: 048
     Dates: start: 201808
  8. BONE STRENGTH [Concomitant]
     Dosage: 2 TABLETS PER DOSE ;ONGOING: YES
     Route: 048
     Dates: start: 2019
  9. GLUTATHIONE [Concomitant]
     Active Substance: GLUTATHIONE
     Dosage: YES
     Route: 048
     Dates: start: 201806
  10. NAC (UNITED STATES) [Concomitant]
     Indication: Multiple sclerosis
     Dosage: YES
     Route: 048
     Dates: start: 201806
  11. ASCORBIC ACID\CRANBERRY [Concomitant]
     Active Substance: ASCORBIC ACID\CRANBERRY
     Dosage: YES
     Route: 048
     Dates: start: 201912
  12. PROBIOTICS NOS [Concomitant]
     Active Substance: PROBIOTICS NOS
     Dosage: YES
     Route: 048
  13. VITAMIN D3 [Concomitant]
     Active Substance: CHOLECALCIFEROL
     Indication: Vitamin D decreased
     Dosage: YES
     Route: 048
  14. TESTOSTERONE [Concomitant]
     Active Substance: TESTOSTERONE
     Indication: Blood testosterone decreased
     Dosage: CREME?1 MG PER GM HRT APPLIED TO ARM ;ONGOING: YES
     Route: 061
     Dates: start: 201912
  15. ESTRADIOL [Concomitant]
     Active Substance: ESTRADIOL
     Indication: Atrophic vulvovaginitis
     Dosage: APPLIED VAGINAL AND URINARY MEATUS ;ONGOING: YES
     Route: 061
     Dates: start: 201908
  16. ESCITALOPRAM [Concomitant]
     Active Substance: ESCITALOPRAM OXALATE
     Indication: Depression
     Route: 048
     Dates: start: 2018
  17. HYDROCHLOROTHIAZIDE [Concomitant]
     Active Substance: HYDROCHLOROTHIAZIDE
     Indication: Hypertension
     Route: 048
     Dates: start: 2021
  18. BACLOFEN [Concomitant]
     Active Substance: BACLOFEN
     Indication: Muscle spasticity
     Dosage: CONTINUOUS PUMP 72.6 MCG PER DAY
     Dates: start: 20230815

REACTIONS (7)
  - Cystitis [Recovered/Resolved]
  - Gait disturbance [Not Recovered/Not Resolved]
  - Alopecia [Recovered/Resolved]
  - Vitamin B12 decreased [Unknown]
  - Blood testosterone decreased [Recovered/Resolved]
  - Osteopenia [Not Recovered/Not Resolved]
  - Immunoglobulins decreased [Not Recovered/Not Resolved]

NARRATIVE: CASE EVENT DATE: 20181001
